FAERS Safety Report 24250144 (Version 1)
Quarter: 2024Q3

REPORT INFORMATION
  Report Type: Spontaneous
  Country: PL (occurrence: PL)
  Receive Date: 20240826
  Receipt Date: 20240826
  Transmission Date: 20241017
  Serious: Yes (Hospitalization)
  Sender: BAYER
  Company Number: PL-BAYER-2024A121467

PATIENT
  Age: 64 Year
  Sex: Male
  Weight: 89 kg

DRUGS (1)
  1. GADOBUTROL [Suspect]
     Active Substance: GADOBUTROL
     Dosage: 7.5 ML, ONCE

REACTIONS (4)
  - Hypovolaemia [None]
  - Hypotonia [None]
  - Hypotension [None]
  - Oxygen saturation decreased [None]

NARRATIVE: CASE EVENT DATE: 20240820
